FAERS Safety Report 8987074 (Version 2)
Quarter: 2013Q1

REPORT INFORMATION
  Report Type: Spontaneous
  Country: FR (occurrence: FR)
  Receive Date: 20121227
  Receipt Date: 20130131
  Transmission Date: 20140127
  Serious: Yes (Hospitalization, Other)
  Sender: FDA-Public Use
  Company Number: FR-BRISTOL-MYERS SQUIBB COMPANY-17230780

PATIENT
  Age: 51 Year
  Sex: Male

DRUGS (16)
  1. COUMADIN [Suspect]
     Indication: NEPHROTIC SYNDROME
     Route: 048
     Dates: start: 201210, end: 20121031
  2. TRIFLUCAN [Interacting]
     Indication: OESOPHAGEAL CANDIDIASIS
     Route: 048
     Dates: start: 201210, end: 20121031
  3. CORTANCYL [Interacting]
     Indication: NEPHROTIC SYNDROME
     Route: 048
     Dates: start: 201210
  4. CLAMOXYL [Interacting]
     Indication: HELICOBACTER INFECTION
     Dates: start: 201210
  5. RULID [Interacting]
     Indication: HELICOBACTER INFECTION
     Dates: start: 201210
  6. AMLOR [Concomitant]
  7. ESOMEPRAZOLE [Concomitant]
  8. FOLIC ACID [Concomitant]
  9. OXAZEPAM [Concomitant]
     Dosage: 1DF= 50 MG - 0.5 TABLET IN EVEN
  10. PIPAMPERONE [Concomitant]
  11. PREDNISOLONE [Concomitant]
  12. TAMSULOSIN [Concomitant]
  13. VITAMIN B1 + B6 [Concomitant]
  14. ARANESP [Concomitant]
  15. SALBUTAMOL [Concomitant]
  16. ATROVENT [Concomitant]

REACTIONS (5)
  - Renal failure acute [Recovering/Resolving]
  - International normalised ratio increased [Recovered/Resolved]
  - Overdose [Unknown]
  - Renal haemorrhage [Unknown]
  - Drug interaction [Unknown]
